FAERS Safety Report 6741389-8 (Version None)
Quarter: 2010Q2

REPORT INFORMATION
  Report Type: 
  Country: None (occurrence: None)
  Receive Date: 20100526
  Receipt Date: 20100514
  Transmission Date: 20101027
  Serious: Yes (Other)
  Sender: FDA-Public Use
  Company Number: PHHY2010US31791

PATIENT
  Sex: Female

DRUGS (5)
  1. RECLAST [Suspect]
     Dosage: 5 MG, YEARLY
     Route: 042
     Dates: start: 20090301
  2. RECLAST [Suspect]
     Dosage: 5 MG, YEARLY
     Route: 042
     Dates: start: 20100401
  3. CALCIUM [Concomitant]
  4. VITAMIN D3 [Concomitant]
  5. SYNTHROID [Concomitant]

REACTIONS (3)
  - HIP ARTHROPLASTY [None]
  - MYALGIA [None]
  - TOOTHACHE [None]
